FAERS Safety Report 6202572-3 (Version None)
Quarter: 2009Q2

REPORT INFORMATION
  Report Type: 
  Country: None (occurrence: None)
  Receive Date: 20090526
  Receipt Date: 20090522
  Transmission Date: 20091009
  Serious: Yes (Hospitalization)
  Sender: FDA-Public Use
  Company Number: JP-BRISTOL-MYERS SQUIBB COMPANY-14634703

PATIENT
  Age: 58 Year
  Sex: Female
  Weight: 42 kg

DRUGS (8)
  1. CISPLATIN [Suspect]
     Indication: PLEURAL MESOTHELIOMA MALIGNANT
     Dosage: 11MAR08:100MG 02APR08-30APR08:67MG(29D) 28MAY08-16JUL08:50MG(50D) STOPPED ON 23JUL08
     Route: 042
     Dates: start: 20080311, end: 20080311
  2. PEMETREXED DISODIUM [Suspect]
     Indication: PLEURAL MESOTHELIOMA MALIGNANT
     Dosage: LAST INFUSION TAKEN ON 16JUL2008 STOPPED ON 23JUL08 VIAL
     Route: 042
     Dates: start: 20080311, end: 20080311
  3. PANVITAN [Concomitant]
     Dosage: POWDER
     Dates: start: 20080222, end: 20080806
  4. FRESMIN-S [Concomitant]
     Dosage: INJECTION
     Dates: start: 20080222, end: 20080627
  5. MAGLAX [Concomitant]
     Dosage: TAB
     Dates: start: 20080227
  6. NAUZELIN [Concomitant]
     Dosage: TAB
     Dates: start: 20080312
  7. LOXONIN [Concomitant]
     Dosage: TAB
     Dates: start: 20080227
  8. DECADRON [Concomitant]
     Dosage: TAB
     Dates: start: 20080314, end: 20080720

REACTIONS (2)
  - IRON DEFICIENCY ANAEMIA [None]
  - RENAL IMPAIRMENT [None]
